FAERS Safety Report 6883503-X (Version None)
Quarter: 2010Q3

REPORT INFORMATION
  Report Type: 
  Country: None (occurrence: None)
  Receive Date: 20100729
  Receipt Date: 20100720
  Transmission Date: 20110219
  Serious: Yes (Other)
  Sender: FDA-Public Use
  Company Number: JP-MERCK-1006USA00794

PATIENT
  Age: 88 Year
  Sex: Female

DRUGS (23)
  1. FOSAMAX [Suspect]
     Indication: OSTEOPOROSIS
     Route: 048
     Dates: start: 20081002
  2. CELECOX [Concomitant]
     Indication: ANALGESIC THERAPY
     Route: 048
     Dates: start: 20090129
  3. METHYCOBAL [Concomitant]
     Indication: NEUROPATHY PERIPHERAL
     Route: 048
     Dates: start: 20090129
  4. LOXONIN [Concomitant]
     Indication: ANALGESIC THERAPY
     Route: 048
     Dates: start: 20100514
  5. KETOPROFEN [Concomitant]
     Indication: ANALGESIC THERAPY
     Route: 061
     Dates: start: 20100514
  6. MUCOSTA [Concomitant]
     Indication: GASTRITIS PROPHYLAXIS
     Route: 048
     Dates: start: 20100514
  7. AIROMATE [Concomitant]
     Indication: MYALGIA
     Route: 048
     Dates: start: 20080623
  8. AIROMATE [Concomitant]
     Indication: ARTHRALGIA
     Route: 048
     Dates: start: 20080623
  9. SHAKUYAKU-KANZO-TO [Concomitant]
     Indication: MYALGIA
     Route: 048
     Dates: start: 20080623
  10. VOLTAREN [Concomitant]
     Indication: ARTHRALGIA
     Route: 061
     Dates: start: 20080623
  11. VOLTAREN [Concomitant]
     Route: 061
     Dates: start: 20090601
  12. VOLTAREN [Concomitant]
     Indication: MYALGIA
     Route: 061
     Dates: start: 20080623
  13. VOLTAREN [Concomitant]
     Route: 061
     Dates: start: 20090601
  14. SIMVASTATIN [Concomitant]
     Indication: HYPERLIPIDAEMIA
     Route: 048
     Dates: start: 20080905
  15. TAIPROTON [Concomitant]
     Indication: GASTRIC ULCER
     Route: 048
     Dates: start: 20100223
  16. GULLIOSTIN [Concomitant]
     Route: 048
     Dates: start: 20100223
  17. SODIUM FERROUS CITRATE [Concomitant]
     Indication: IRON DEFICIENCY ANAEMIA
     Route: 048
     Dates: start: 20100223
  18. AMLODIPINE [Concomitant]
     Indication: HYPERTENSION
     Route: 048
     Dates: start: 20090601
  19. NONSOL [Concomitant]
     Indication: HYPERLIPIDAEMIA
     Route: 048
     Dates: start: 20090601
  20. NICERGOLINE [Concomitant]
     Route: 048
     Dates: start: 20090601
  21. CLERMON [Concomitant]
     Route: 048
     Dates: start: 20090601
  22. LIPOBLOCK [Concomitant]
     Indication: HYPERLIPIDAEMIA
     Route: 048
     Dates: start: 20090601
  23. VOLTAREN [Concomitant]
     Route: 061
     Dates: start: 20090601

REACTIONS (1)
  - OSTEOMYELITIS [None]
